FAERS Safety Report 11328441 (Version 2)
Quarter: 2015Q3

REPORT INFORMATION
  Report Type: Spontaneous
  Country: US (occurrence: US)
  Receive Date: 20150731
  Receipt Date: 20150908
  Transmission Date: 20151125
  Serious: Yes (Other)
  Sender: FDA-Public Use
  Company Number: US-LUNDBECK-DKLU2002304

PATIENT
  Age: 1 Year
  Sex: Male

DRUGS (3)
  1. TOPAMAX [Concomitant]
     Active Substance: TOPIRAMATE
     Indication: PRODUCT USED FOR UNKNOWN INDICATION
     Route: 065
  2. KEPPRA [Concomitant]
     Active Substance: LEVETIRACETAM
     Indication: PRODUCT USED FOR UNKNOWN INDICATION
     Route: 065
  3. ONFI [Suspect]
     Active Substance: CLOBAZAM
     Indication: PARTIAL SEIZURES
     Route: 065
     Dates: start: 20150605, end: 20150629

REACTIONS (5)
  - Muscle spasms [Unknown]
  - Seizure [Recovering/Resolving]
  - Lethargy [Unknown]
  - Rash generalised [Unknown]
  - Insomnia [Unknown]

NARRATIVE: CASE EVENT DATE: 20150629
